FAERS Safety Report 10314166 (Version 1)
Quarter: 2014Q3

REPORT INFORMATION
  Report Type: Spontaneous
  Country: FR (occurrence: None)
  Receive Date: 20140716
  Receipt Date: 20140716
  Transmission Date: 20150326
  Serious: Yes (Other)
  Sender: FDA-Public Use
  Company Number: 2014FR00708

PATIENT

DRUGS (3)
  1. OXALIPLATIN (OXALIPLATIN) [Suspect]
     Active Substance: OXALIPLATIN
     Indication: BILIARY CANCER METASTATIC
     Dosage: 100 MG/M2 WAS GIVEN AS A 2 H INFUSION ON DAY 2, INFUSION
  2. CETUXIMAB [Suspect]
     Active Substance: CETUXIMAB
     Indication: BILIARY CANCER METASTATIC
  3. GEMCITABINE (GEMCITABINE) INJECTION [Suspect]
     Active Substance: GEMCITABINE HYDROCHLORIDE
     Indication: BILIARY CANCER METASTATIC
     Dosage: 100 KIN INTRAVENOUSINFUSION (10 MG/M2 PER MIN) ON DAY 1

REACTIONS (1)
  - Hepatic encephalopathy [None]
